FAERS Safety Report 21393932 (Version 1)
Quarter: 2022Q3

REPORT INFORMATION
  Report Type: Spontaneous
  Country: FR (occurrence: FR)
  Receive Date: 20220930
  Receipt Date: 20220930
  Transmission Date: 20221026
  Serious: Yes (Other)
  Sender: FDA-Public Use
  Company Number: FR-NOVARTISPH-NVSC2022FR215687

PATIENT
  Age: 57 Year
  Sex: Female
  Weight: 52 kg

DRUGS (8)
  1. PEGFILGRASTIM [Suspect]
     Active Substance: PEGFILGRASTIM
     Indication: Product used for unknown indication
     Dosage: UNK
     Route: 065
  2. CAPECITABINE [Suspect]
     Active Substance: CAPECITABINE
     Indication: Colorectal cancer metastatic
     Dosage: 8000 MG, CYCLIC ((CYCLE 1 DATE OF LAST DOSE PRIOR TO THE SAE: 04/JAN/2021)
     Route: 065
     Dates: start: 20201123, end: 20210104
  3. CAPECITABINE [Suspect]
     Active Substance: CAPECITABINE
     Dosage: 2000 MG (BD, MORNING AND EVENING)
     Route: 065
     Dates: end: 20210117
  4. CAPECITABINE [Suspect]
     Active Substance: CAPECITABINE
     Dosage: 4000 MG (BID,CYCLE 1 DATE OF LAST DOSE PRIOR TO THE SAE: 18/JAN/2021)
     Route: 065
  5. BEVACIZUMAB [Suspect]
     Active Substance: BEVACIZUMAB
     Indication: Colorectal cancer metastatic
     Dosage: 712 MG (SINGLE DOSE)
     Route: 042
     Dates: start: 20210104, end: 20210104
  6. ATEZOLIZUMAB [Suspect]
     Active Substance: ATEZOLIZUMAB
     Indication: Colorectal cancer metastatic
     Dosage: 1200 MG, CYCLIC
     Route: 065
     Dates: start: 20201123, end: 20210104
  7. OXALIPLATIN [Suspect]
     Active Substance: OXALIPLATIN
     Indication: Colorectal cancer metastatic
     Dosage: 260 MG, CYCLIC
     Route: 065
     Dates: start: 20201123, end: 20210104
  8. YTTRIUM CHLORIDE Y-90 [Suspect]
     Active Substance: YTTRIUM CHLORIDE Y-90
     Indication: Colorectal cancer metastatic
     Dosage: UNK (311 MGY)
     Route: 065
     Dates: start: 20201217, end: 20201217

REACTIONS (2)
  - Peripheral sensory neuropathy [Recovered/Resolved with Sequelae]
  - Drug hypersensitivity [Recovered/Resolved with Sequelae]

NARRATIVE: CASE EVENT DATE: 20201124
